FAERS Safety Report 16763079 (Version 1)
Quarter: 2019Q3

REPORT INFORMATION
  Report Type: Spontaneous
  Country: GB (occurrence: GB)
  Receive Date: 20190902
  Receipt Date: 20190902
  Transmission Date: 20191005
  Serious: Yes (Death)
  Sender: FDA-Public Use
  Company Number: GB-BIOGEN-2019BI00780922

PATIENT
  Age: 41 Year
  Sex: Female

DRUGS (1)
  1. AVONEX [Suspect]
     Active Substance: INTERFERON BETA-1A
     Indication: MULTIPLE SCLEROSIS
     Route: 030
     Dates: start: 20140827

REACTIONS (1)
  - Death [Fatal]

NARRATIVE: CASE EVENT DATE: 20190813
